FAERS Safety Report 7358424-9 (Version None)
Quarter: 2011Q1

REPORT INFORMATION
  Report Type: 
  Country: None (occurrence: None)
  Receive Date: 20110317
  Receipt Date: 20110315
  Transmission Date: 20110831
  Serious: Yes (Disabling, Other)
  Sender: FDA-Public Use
  Company Number: CH-PFIZER INC-2011024629

PATIENT
  Age: 44 Year
  Sex: Female
  Weight: 65 kg

DRUGS (2)
  1. LITHIOFOR [Concomitant]
     Dosage: UNK
     Route: 048
     Dates: start: 20071030
  2. EFFEXOR XR [Suspect]
     Dosage: UNK
     Route: 048
     Dates: start: 20070630

REACTIONS (7)
  - DRUG WITHDRAWAL SYNDROME [None]
  - VOMITING [None]
  - BALANCE DISORDER [None]
  - ABDOMINAL DISCOMFORT [None]
  - FEELING ABNORMAL [None]
  - NAUSEA [None]
  - DIZZINESS [None]
